FAERS Safety Report 4570476-8 (Version None)
Quarter: 2005Q1

REPORT INFORMATION
  Report Type: 
  Country: None (occurrence: None)
  Receive Date: 20050203
  Receipt Date: 20050203
  Transmission Date: 20050727
  Serious: Yes (Hospitalization)
  Sender: FDA-Public Use
  Company Number: None

PATIENT
  Age: 51 Year
  Sex: Male
  Weight: 66.6 kg

DRUGS (7)
  1. ERLOTINIB   150 MG   GENETECH [Suspect]
     Indication: NON-SMALL CELL LUNG CANCER STAGE IIIB
     Dosage: 150 MG   QD   ORAL
     Route: 048
     Dates: start: 20050119, end: 20050131
  2. DIPHENHYDRAMINE HCL [Concomitant]
  3. FENTANYL [Concomitant]
  4. MORPHINE SULFATE [Concomitant]
  5. DEXAMETHASONE [Concomitant]
  6. FLUOEXETING [Concomitant]
  7. DOCUSATE [Concomitant]

REACTIONS (1)
  - PNEUMOTHORAX [None]
